FAERS Safety Report 6546798-8 (Version None)
Quarter: 2010Q1

REPORT INFORMATION
  Report Type: 
  Country: None (occurrence: None)
  Receive Date: 20100119
  Receipt Date: 20100115
  Transmission Date: 20100710
  Serious: Yes (Hospitalization)
  Sender: FDA-Public Use
  Company Number: SP02732

PATIENT
  Age: 20 Year
  Sex: Male

DRUGS (1)
  1. COLAZAL [Suspect]
     Indication: PROCTOCOLITIS
     Dosage: ORAL
     Route: 048
     Dates: start: 20091221, end: 20100106

REACTIONS (6)
  - FEELING ABNORMAL [None]
  - HYPOTENSION [None]
  - MYOCARDITIS [None]
  - PYREXIA [None]
  - RESPIRATORY DISTRESS [None]
  - WHITE BLOOD CELL COUNT INCREASED [None]
